FAERS Safety Report 17940996 (Version 1)
Quarter: 2020Q2

REPORT INFORMATION
  Report Type: Spontaneous
  Country: US (occurrence: US)
  Receive Date: 20200625
  Receipt Date: 20200625
  Transmission Date: 20200714
  Serious: No
  Sender: FDA-Public Use
  Company Number: US-SA-2020SA153552

PATIENT

DRUGS (9)
  1. BIOTIN [Concomitant]
     Active Substance: BIOTIN
     Route: 065
  2. VITAMIN D3 [Concomitant]
     Active Substance: CHOLECALCIFEROL
     Route: 065
  3. AUBAGIO [Suspect]
     Active Substance: TERIFLUNOMIDE
     Indication: MULTIPLE SCLEROSIS
     Dosage: 14 MG, QD
     Route: 048
     Dates: start: 201908
  4. LORATADINE. [Concomitant]
     Active Substance: LORATADINE
     Route: 065
  5. OMEGA-3 NOS [Concomitant]
     Route: 065
  6. TURMERIC [CURCUMA LONGA] [Concomitant]
     Active Substance: HERBALS\TURMERIC
     Route: 065
  7. B-COMPLEX [VITAMIN B COMPLEX] [Concomitant]
     Route: 065
  8. VITAMIN C [Concomitant]
     Active Substance: ASCORBIC ACID
     Route: 065
  9. DHEA [Concomitant]
     Active Substance: PRASTERONE
     Route: 065

REACTIONS (6)
  - Pain in extremity [Recovering/Resolving]
  - Rash [Unknown]
  - Condition aggravated [Unknown]
  - Miliaria [Unknown]
  - Constipation [Recovering/Resolving]
  - Muscle spasms [Recovering/Resolving]
